FAERS Safety Report 6675182-1 (Version None)
Quarter: 2010Q2

REPORT INFORMATION
  Report Type: 
  Country: None (occurrence: None)
  Receive Date: 20100409
  Receipt Date: 20100401
  Transmission Date: 20101027
  Serious: Yes (Other)
  Sender: FDA-Public Use
  Company Number: US-JNJFOC-20100401787

PATIENT

DRUGS (2)
  1. TYLENOL [Suspect]
  2. TYLENOL [Suspect]
     Indication: PAIN

REACTIONS (4)
  - ELECTROCARDIOGRAM T WAVE AMPLITUDE DECREASED [None]
  - HYPERTENSION [None]
  - PAROSMIA [None]
  - PRODUCT QUALITY ISSUE [None]
